FAERS Safety Report 17953420 (Version 2)
Quarter: 2020Q3

REPORT INFORMATION
  Report Type: Spontaneous
  Country: US (occurrence: US)
  Receive Date: 20200628
  Receipt Date: 20200722
  Transmission Date: 20201103
  Serious: No
  Sender: FDA-Public Use
  Company Number: US-JNJFOC-20200617717

PATIENT
  Age: 70 Year
  Sex: Male
  Weight: 70.37 kg

DRUGS (1)
  1. ZYRTEC [Suspect]
     Active Substance: CETIRIZINE HYDROCHLORIDE
     Indication: MULTIPLE ALLERGIES
     Dosage: 1 TABLET ONCE A DAY?DATE OF LAST ADMIN: 11?JUN?2020
     Route: 048
     Dates: start: 20200525

REACTIONS (1)
  - Drug ineffective [Unknown]
